FAERS Safety Report 5132114-5 (Version None)
Quarter: 2006Q4

REPORT INFORMATION
  Report Type: 
  Country: None (occurrence: None)
  Receive Date: 20061017
  Receipt Date: 20061003
  Transmission Date: 20070319
  Serious: Yes (Other)
  Sender: FDA-Public Use
  Company Number: 2006S1000215

PATIENT
  Age: 65 Year
  Sex: Male

DRUGS (6)
  1. CUBICIN [Suspect]
     Indication: BACTERAEMIA
     Dates: start: 20051014, end: 20051028
  2. CUBICIN [Suspect]
     Indication: PACEMAKER COMPLICATION
     Dates: start: 20051014, end: 20051028
  3. CUBICIN [Suspect]
     Indication: STAPHYLOCOCCAL INFECTION
     Dates: start: 20051014, end: 20051028
  4. VANCOMYCIN [Concomitant]
  5. GENTAMICIN [Concomitant]
  6. RIFAMPIN [Concomitant]

REACTIONS (8)
  - AORTIC VALVE REPLACEMENT [None]
  - CARDIAC VALVE ABSCESS [None]
  - DISEASE RECURRENCE [None]
  - ENDOCARDITIS STAPHYLOCOCCAL [None]
  - PATHOGEN RESISTANCE [None]
  - STAPHYLOCOCCAL BACTERAEMIA [None]
  - STAPHYLOCOCCAL INFECTION [None]
  - SURGICAL PROCEDURE REPEATED [None]
